FAERS Safety Report 9943694 (Version 2)
Quarter: 2014Q3

REPORT INFORMATION
  Report Type: Report from Study
  Country: DE (occurrence: IE)
  Receive Date: 20140303
  Receipt Date: 20140721
  Transmission Date: 20150326
  Serious: Yes (Death)
  Sender: FDA-Public Use
  Company Number: DE-ACTELION-A-US2014-95332

PATIENT
  Age: 71 Year
  Sex: Male

DRUGS (1)
  1. VENTAVIS [Suspect]
     Active Substance: ILOPROST
     Indication: PULMONARY HYPERTENSION
     Dosage: 5 MCG, 6 TIMES DAILY
     Route: 055
     Dates: start: 20121108

REACTIONS (1)
  - Death [Fatal]

NARRATIVE: CASE EVENT DATE: 20140210
